FAERS Safety Report 8520821-3 (Version None)
Quarter: 2012Q3

REPORT INFORMATION
  Report Type: 
  Country: None (occurrence: None)
  Receive Date: 20120719
  Receipt Date: 20120712
  Transmission Date: 20120928
  Serious: Yes (Other)
  Sender: FDA-Public Use
  Company Number: US-PFIZER INC-2011142646

PATIENT
  Sex: Female

DRUGS (2)
  1. LYRICA [Suspect]
     Dosage: 50 MG, UNK
     Route: 048
  2. LYRICA [Suspect]
     Dosage: UNK
     Route: 048

REACTIONS (9)
  - FEELING ABNORMAL [None]
  - BIPOLAR DISORDER [None]
  - IMPAIRED DRIVING ABILITY [None]
  - BLOOD PRESSURE INCREASED [None]
  - OEDEMA PERIPHERAL [None]
  - ARTHROPOD BITE [None]
  - TOOTH FRACTURE [None]
  - TOOTHACHE [None]
  - SKIN DISCOLOURATION [None]
